FAERS Safety Report 10740968 (Version 1)
Quarter: 2015Q1

REPORT INFORMATION
  Report Type: Spontaneous
  Country: US (occurrence: None)
  Receive Date: 20150123
  Receipt Date: 20150123
  Transmission Date: 20150721
  Serious: Yes (Life-Threatening, Hospitalization)
  Sender: FDA-Public Use
  Company Number: None

PATIENT
  Age: 78 Year
  Sex: Male
  Weight: 72.9 kg

DRUGS (1)
  1. ASPIRIN. [Suspect]
     Active Substance: ASPIRIN
     Indication: CEREBROVASCULAR ACCIDENT PROPHYLAXIS
     Route: 048
     Dates: start: 20140521, end: 20141001

REACTIONS (6)
  - Oesophagitis [None]
  - Gastric disorder [None]
  - Duodenitis [None]
  - Upper gastrointestinal haemorrhage [None]
  - Gastric ulcer [None]
  - Leiomyoma [None]

NARRATIVE: CASE EVENT DATE: 20141001
